FAERS Safety Report 16157922 (Version 1)
Quarter: 2019Q2

REPORT INFORMATION
  Report Type: Spontaneous
  Country: GB (occurrence: GB)
  Receive Date: 20190404
  Receipt Date: 20190404
  Transmission Date: 20190711
  Serious: Yes (Other)
  Sender: FDA-Public Use
  Company Number: GB-GLAXOSMITHKLINE-GB2019058479

PATIENT
  Age: 43 Year
  Sex: Female
  Weight: 53 kg

DRUGS (1)
  1. BECONASE AQ [Suspect]
     Active Substance: BECLOMETHASONE DIPROPIONATE MONOHYDRATE
     Indication: RHINITIS PERENNIAL
     Dosage: UNK
     Route: 045
     Dates: start: 20190311, end: 20190314

REACTIONS (8)
  - Tinnitus [Recovered/Resolved with Sequelae]
  - Confusional state [Recovered/Resolved]
  - Irritability [Recovering/Resolving]
  - Headache [Recovered/Resolved]
  - Feeling abnormal [Recovered/Resolved]
  - Anger [Recovered/Resolved]
  - Mood altered [Recovered/Resolved with Sequelae]
  - Disturbance in attention [Recovered/Resolved]

NARRATIVE: CASE EVENT DATE: 20190312
